FAERS Safety Report 20992630 (Version 5)
Quarter: 2024Q3

REPORT INFORMATION
  Report Type: Spontaneous
  Country: US (occurrence: US)
  Receive Date: 20220622
  Receipt Date: 20240927
  Transmission Date: 20241017
  Serious: No
  Sender: PFIZER
  Company Number: US-PFIZER INC-PV202200006970

PATIENT
  Age: 72 Year
  Sex: Female

DRUGS (2)
  1. IBRANCE [Suspect]
     Active Substance: PALBOCICLIB
     Dosage: 125 MG
  2. IBRANCE [Suspect]
     Active Substance: PALBOCICLIB
     Dosage: ONE 100 MG TABLET, DAILY, FOR 21 DAYS ON, THEN 7 DAYS OFF
     Route: 048

REACTIONS (3)
  - Malaise [Unknown]
  - Feeling abnormal [Unknown]
  - Disturbance in attention [Unknown]
